FAERS Safety Report 5510295-9 (Version None)
Quarter: 2007Q4

REPORT INFORMATION
  Report Type: 
  Country: None (occurrence: None)
  Receive Date: 20071108
  Receipt Date: 20071102
  Transmission Date: 20080405
  Serious: Yes (Other)
  Sender: FDA-Public Use
  Company Number: GB-JNJFOC-20070902363

PATIENT
  Age: 14 Year
  Sex: Male
  Weight: 63 kg

DRUGS (4)
  1. RISPERDAL [Suspect]
     Indication: LEARNING DISABILITY
     Route: 048
  2. RISPERDAL [Suspect]
     Indication: AUTISM
     Route: 048
  3. RISPERDAL [Suspect]
     Indication: AGGRESSION
     Route: 048
  4. MELATONIN [Concomitant]
     Indication: SLEEP DISORDER
     Route: 048

REACTIONS (4)
  - AGITATION [None]
  - CHOREA [None]
  - MUSCLE RIGIDITY [None]
  - SELF INJURIOUS BEHAVIOUR [None]
